FAERS Safety Report 5045599-X (Version None)
Quarter: 2006Q3

REPORT INFORMATION
  Report Type: 
  Country: None (occurrence: None)
  Receive Date: 20060707
  Receipt Date: 20060628
  Transmission Date: 20061208
  Serious: Yes (Hospitalization)
  Sender: FDA-Public Use
  Company Number: US-ROCHE-453682

PATIENT
  Age: 56 Year
  Sex: Male

DRUGS (2)
  1. PEGASYS [Suspect]
     Dosage: ROUTE REPORTED AS INJECTABLE AND SUBCUTANEOUS.
     Route: 058
     Dates: start: 20060413, end: 20060515
  2. RIBAVIRIN [Suspect]
     Route: 048
     Dates: start: 20060413, end: 20060515

REACTIONS (4)
  - BLOOD PRESSURE INCREASED [None]
  - CARDIAC FAILURE CONGESTIVE [None]
  - FULL BLOOD COUNT DECREASED [None]
  - PULMONARY OEDEMA [None]
